FAERS Safety Report 12237624 (Version 1)
Quarter: 2016Q2

REPORT INFORMATION
  Report Type: Spontaneous
  Country: GB (occurrence: GB)
  Receive Date: 20160405
  Receipt Date: 20160405
  Transmission Date: 20160815
  Serious: Yes (Life-Threatening, Hospitalization, Other)
  Sender: FDA-Public Use
  Company Number: GB-AUROBINDO-AUR-APL-2016-04019

PATIENT
  Age: 65 Year
  Sex: Female

DRUGS (6)
  1. CITALOPRAM [Suspect]
     Active Substance: CITALOPRAM HYDROBROMIDE
     Indication: LIMITED SYMPTOM PANIC ATTACK
     Dosage: 20 MG, UNK
     Route: 048
  2. VITAMIN D3 [Concomitant]
     Active Substance: CHOLECALCIFEROL
  3. MIRTAZAPINE 15MG [Suspect]
     Active Substance: MIRTAZAPINE
     Indication: LIMITED SYMPTOM PANIC ATTACK
     Dosage: FOR APROXIMATELY 6 MONTHS
     Route: 048
     Dates: end: 20151226
  4. CODEINE PHOSPHATE [Concomitant]
     Active Substance: CODEINE PHOSPHATE
  5. AMLODIPINE [Concomitant]
     Active Substance: AMLODIPINE BESYLATE
  6. PROPRANOLOL [Concomitant]
     Active Substance: PROPRANOLOL\PROPRANOLOL HYDROCHLORIDE
     Dosage: FOR APROXIMATELY 6 MONTHS. STOPPED 4 WEEKS AGO.

REACTIONS (23)
  - Dry mouth [Not Recovered/Not Resolved]
  - Diarrhoea [Not Recovered/Not Resolved]
  - Anxiety [Recovered/Resolved with Sequelae]
  - Tremor [Not Recovered/Not Resolved]
  - Dyspnoea [Recovered/Resolved]
  - Musculoskeletal stiffness [Recovered/Resolved]
  - Gait disturbance [Unknown]
  - Gingival pain [Not Recovered/Not Resolved]
  - Dizziness [Recovering/Resolving]
  - Paraesthesia [Not Recovered/Not Resolved]
  - Serotonin syndrome [Recovered/Resolved]
  - Abnormal weight gain [Recovered/Resolved with Sequelae]
  - Dyskinesia [Unknown]
  - Feeling abnormal [Unknown]
  - Heart rate increased [Not Recovered/Not Resolved]
  - Depersonalisation/derealisation disorder [Recovered/Resolved]
  - Incoherent [Unknown]
  - Fatigue [Recovering/Resolving]
  - Pruritus generalised [Recovering/Resolving]
  - Pain in jaw [Not Recovered/Not Resolved]
  - Screaming [Unknown]
  - Suicidal ideation [Unknown]
  - Dysstasia [Unknown]
